FAERS Safety Report 20240346 (Version 18)
Quarter: 2022Q4

REPORT INFORMATION
  Report Type: Report from Study
  Country: CN (occurrence: None)
  Receive Date: 20211228
  Receipt Date: 20221118
  Transmission Date: 20230113
  Serious: Yes (Hospitalization)
  Sender: FDA-Public Use
  Company Number: CN-ROCHE-2945547

PATIENT
  Age: 57 Year
  Sex: Female
  Weight: 51 kg

DRUGS (56)
  1. TIRAGOLUMAB [Suspect]
     Active Substance: TIRAGOLUMAB
     Indication: Oesophageal squamous cell carcinoma
     Dosage: ON 20/AUG/2021, SHE RECEIVED MOST RECENT DOSE OF BLINDED TIRAGOLUMAB PRIOR TO AE?ON 23/NOV/2021, SHE
     Route: 042
     Dates: start: 20210618
  2. ATEZOLIZUMAB [Suspect]
     Active Substance: ATEZOLIZUMAB
     Indication: Oesophageal squamous cell carcinoma
     Dosage: ON 20/AUG/2021, SHE RECEIVED MOST RECENT DOSE OF BLINDED ATEZOLIZUMAB PRIOR TO AE.?ON 23/NOV/2021, S
     Route: 041
     Dates: start: 20210618
  3. SODIUM BICARBONATE [Concomitant]
     Active Substance: SODIUM BICARBONATE
     Route: 048
     Dates: start: 20210604, end: 20210919
  4. RIVAROXABAN [Concomitant]
     Active Substance: RIVAROXABAN
     Indication: Thrombosis
     Route: 048
     Dates: start: 20210618, end: 20210907
  5. VONOPRAZAN FUMARATE [Concomitant]
     Active Substance: VONOPRAZAN FUMARATE
     Indication: Vomiting
     Route: 048
     Dates: start: 20210714, end: 20211008
  6. CODEINE PHOSPHATE;PLATYCODON GRANDIFLORUS [Concomitant]
     Indication: Cough
     Dates: start: 20210821, end: 20211029
  7. CODEINE PHOSPHATE;PLATYCODON GRANDIFLORUS [Concomitant]
     Route: 048
     Dates: start: 20210728
  8. DEXTROSE\SODIUM CHLORIDE [Concomitant]
     Active Substance: DEXTROSE\SODIUM CHLORIDE
     Indication: Nutritional supplementation
     Dates: start: 20210910, end: 20210910
  9. DEXTROSE\SODIUM CHLORIDE [Concomitant]
     Active Substance: DEXTROSE\SODIUM CHLORIDE
     Indication: Gastrostomy
     Dates: start: 20210917, end: 20210917
  10. MISTURA GLYCYRRHIZAE COMPOSITA [Concomitant]
     Indication: Cough
     Dates: start: 20210910, end: 20210916
  11. MISTURA GLYCYRRHIZAE COMPOSITA [Concomitant]
     Dosage: 1 UNKNOWN
     Route: 048
     Dates: start: 20211020, end: 20211030
  12. AMBROXOL HYDROCHLORIDE [Concomitant]
     Active Substance: AMBROXOL HYDROCHLORIDE
     Indication: Productive cough
     Dates: start: 20210910, end: 20210916
  13. ILAPRAZOLE [Concomitant]
     Active Substance: ILAPRAZOLE
     Indication: Vomiting
     Dates: start: 20210917, end: 20210922
  14. ILAPRAZOLE [Concomitant]
     Active Substance: ILAPRAZOLE
     Dates: start: 20210903
  15. SODIUM CHLORIDE [Concomitant]
     Active Substance: SODIUM CHLORIDE
     Indication: Gastrostomy
     Route: 042
     Dates: start: 20210917, end: 20210917
  16. SODIUM CHLORIDE [Concomitant]
     Active Substance: SODIUM CHLORIDE
     Indication: Pneumonia
     Dates: start: 20210918, end: 20210920
  17. SODIUM CHLORIDE [Concomitant]
     Active Substance: SODIUM CHLORIDE
     Dates: start: 20210918, end: 20210918
  18. SODIUM CHLORIDE [Concomitant]
     Active Substance: SODIUM CHLORIDE
     Dates: start: 20210920, end: 20210922
  19. SODIUM CHLORIDE [Concomitant]
     Active Substance: SODIUM CHLORIDE
     Route: 042
     Dates: start: 20220108, end: 20220119
  20. SODIUM CHLORIDE [Concomitant]
     Active Substance: SODIUM CHLORIDE
     Route: 042
     Dates: start: 20220112, end: 20220119
  21. SODIUM CHLORIDE [Concomitant]
     Active Substance: SODIUM CHLORIDE
     Route: 042
     Dates: start: 20220110, end: 20220112
  22. SODIUM CHLORIDE [Concomitant]
     Active Substance: SODIUM CHLORIDE
     Route: 042
     Dates: start: 20220109, end: 20220109
  23. SODIUM CHLORIDE [Concomitant]
     Active Substance: SODIUM CHLORIDE
     Route: 042
     Dates: start: 20220108, end: 20220108
  24. SODIUM CHLORIDE [Concomitant]
     Active Substance: SODIUM CHLORIDE
     Route: 042
     Dates: start: 20211209, end: 20211214
  25. PROTEASE [Concomitant]
     Active Substance: PROTEASE
     Indication: Gastrostomy
     Dates: start: 20210917, end: 20210917
  26. DIMETHICONE [Concomitant]
     Active Substance: DIMETHICONE
     Indication: Gastrostomy
     Dates: start: 20210917, end: 20210917
  27. DYCLONINE HYDROCHLORIDE [Concomitant]
     Active Substance: DYCLONINE HYDROCHLORIDE
     Indication: Gastrostomy
     Dates: start: 20210917, end: 20210917
  28. OCTREOTIDE ACETATE [Concomitant]
     Active Substance: OCTREOTIDE ACETATE
     Indication: Gastrostomy
     Dates: start: 20210918, end: 20210920
  29. INSULIN NOS [Concomitant]
     Active Substance: INSULIN NOS
     Indication: Gastrostomy
     Dates: start: 20210918, end: 20210918
  30. CEFUROXIME SODIUM [Concomitant]
     Active Substance: CEFUROXIME SODIUM
     Indication: Gastrostomy
     Dates: start: 20210918, end: 20210920
  31. LEVOFLOXACIN MESYLATE [Concomitant]
     Active Substance: LEVOFLOXACIN MESYLATE
     Indication: Gastrostomy
     Dates: start: 20210918, end: 20210921
  32. WATER FOR INJECTION [Concomitant]
     Active Substance: WATER
     Indication: Gastrostomy
     Dates: start: 20210918, end: 20210918
  33. LIDOCAINE [Concomitant]
     Active Substance: LIDOCAINE
     Indication: Gastrostomy
     Dates: start: 20210918, end: 20210918
  34. TRAMADOL HYDROCHLORIDE [Concomitant]
     Active Substance: TRAMADOL HYDROCHLORIDE
     Indication: Gastrostomy
     Dates: start: 20210918, end: 20210918
  35. ALBUMIN HUMAN [Concomitant]
     Active Substance: ALBUMIN HUMAN
     Indication: Gastrostomy
     Dates: start: 20210920, end: 20210922
  36. LEVOFLOXACIN HYDROCHLORIDE [Concomitant]
     Active Substance: LEVOFLOXACIN HYDROCHLORIDE
     Indication: Gastrostomy
     Dates: start: 20210923, end: 20210925
  37. LEVOFLOXACIN HYDROCHLORIDE [Concomitant]
     Active Substance: LEVOFLOXACIN HYDROCHLORIDE
     Indication: Pneumonia
     Route: 042
     Dates: start: 20220214, end: 20220221
  38. MISTURA GLYCYRRHIZAE COMPOSITA [Concomitant]
     Indication: Interstitial lung disease
     Route: 048
     Dates: start: 20211020, end: 20211030
  39. IRON [Concomitant]
     Active Substance: IRON
     Indication: Anaemia
     Dates: start: 20211020
  40. DEXTROSE [Concomitant]
     Active Substance: DEXTROSE
     Indication: Pneumonia
     Route: 042
     Dates: start: 20220108, end: 20220114
  41. DEXTROSE [Concomitant]
     Active Substance: DEXTROSE
     Route: 042
     Dates: start: 20220108, end: 20220119
  42. DEXTROSE [Concomitant]
     Active Substance: DEXTROSE
     Route: 042
     Dates: start: 20220310, end: 20220317
  43. CEFTAZIDIME [Concomitant]
     Active Substance: CEFTAZIDIME
     Indication: Pneumonia
     Route: 042
     Dates: start: 20220112, end: 20220119
  44. CEFTAZIDIME [Concomitant]
     Active Substance: CEFTAZIDIME
     Route: 042
     Dates: start: 20220214, end: 20220221
  45. AMPICILLIN SODIUM\SULBACTAM SODIUM [Concomitant]
     Active Substance: AMPICILLIN SODIUM\SULBACTAM SODIUM
     Indication: Pneumonia
     Route: 042
     Dates: start: 20220110, end: 20220112
  46. AMPICILLIN SODIUM\SULBACTAM SODIUM [Concomitant]
     Active Substance: AMPICILLIN SODIUM\SULBACTAM SODIUM
     Indication: Pneumonia
     Route: 042
     Dates: start: 20220109, end: 20220109
  47. AMPICILLIN SODIUM\SULBACTAM SODIUM [Concomitant]
     Active Substance: AMPICILLIN SODIUM\SULBACTAM SODIUM
     Route: 042
     Dates: start: 20220108, end: 20220108
  48. LACTATED RINGERS SOLUTION [Concomitant]
     Active Substance: CALCIUM CHLORIDE\POTASSIUM CHLORIDE\SODIUM CHLORIDE\SODIUM LACTATE
     Indication: Pneumonia
     Route: 042
     Dates: start: 20220109, end: 20220109
  49. POSTERIOR PITUITARY [Concomitant]
     Indication: Pneumonia
     Route: 042
     Dates: start: 20220108, end: 20220108
  50. AMINOCAPROIC ACID AND SODIUM CHLORIDE [Concomitant]
     Indication: Pneumonia
     Route: 042
     Dates: start: 20220108, end: 20220116
  51. VITAMIN K1 [Concomitant]
     Active Substance: PHYTONADIONE
     Indication: Pneumonia
     Route: 042
     Dates: start: 20220108, end: 20220114
  52. CARBAZOCHROME SODIUM SULFONATE [Concomitant]
     Active Substance: CARBAZOCHROME SODIUM SULFONATE
     Indication: Pneumonia
     Route: 042
     Dates: start: 20220108, end: 20220114
  53. ETHAMSYLATE [Concomitant]
     Active Substance: ETHAMSYLATE
     Indication: Pneumonia
     Route: 042
     Dates: start: 20220108, end: 20220114
  54. OXYCODONE AND ACETAMINOPHEN [Concomitant]
     Active Substance: ACETAMINOPHEN\OXYCODONE HYDROCHLORIDE
     Indication: Oropharyngeal pain
     Route: 048
     Dates: start: 20210602
  55. FERROUS SUCCINATE [Concomitant]
     Active Substance: FERROUS SUCCINATE
     Indication: Anaemia
     Route: 048
     Dates: start: 20210607
  56. TRIMEBUTINE MALEATE [Concomitant]
     Active Substance: TRIMEBUTINE MALEATE
     Indication: Abdominal pain upper
     Route: 048
     Dates: start: 20210611

REACTIONS (2)
  - Interstitial lung disease [Not Recovered/Not Resolved]
  - Infusion related reaction [Not Recovered/Not Resolved]

NARRATIVE: CASE EVENT DATE: 20210907
